FAERS Safety Report 15661996 (Version 4)
Quarter: 2021Q4

REPORT INFORMATION
  Report Type: Spontaneous
  Country: JP (occurrence: JP)
  Receive Date: 20181127
  Receipt Date: 20211202
  Transmission Date: 20220303
  Serious: Yes (Hospitalization, Other)
  Sender: FDA-Public Use
  Company Number: PHHY2018JP161075

PATIENT
  Age: 63 Year
  Sex: Female

DRUGS (2)
  1. PREDNISOLONE [Suspect]
     Active Substance: PREDNISOLONE
     Indication: Rheumatoid arthritis
     Dosage: UNK
     Route: 048
  2. METHOTREXATE [Suspect]
     Active Substance: METHOTREXATE
     Indication: Rheumatoid arthritis
     Dosage: UNK
     Route: 048

REACTIONS (7)
  - Glossopharyngeal nerve paralysis [Recovering/Resolving]
  - Vagus nerve paralysis [Recovering/Resolving]
  - Cerebrovascular accident [Recovering/Resolving]
  - Viral vasculitis [Recovering/Resolving]
  - Facial paralysis [Recovering/Resolving]
  - Varicella zoster virus infection [Recovered/Resolved]
  - Hemiplegia [Recovering/Resolving]
